FAERS Safety Report 9482819 (Version 2)
Quarter: 2013Q3

REPORT INFORMATION
  Report Type: Report from Study
  Country: US (occurrence: US)
  Receive Date: 20130828
  Receipt Date: 20130919
  Transmission Date: 20140515
  Serious: Yes (Death, Hospitalization)
  Sender: FDA-Public Use
  Company Number: US-ACTELION-A-NJ2013-87511

PATIENT
  Age: 42 Year
  Sex: Male

DRUGS (4)
  1. VELETRI [Suspect]
     Indication: PULMONARY ARTERIAL HYPERTENSION
     Dosage: 43.3 NG/KG, PER MIN
     Route: 042
     Dates: start: 20110325
  2. LETAIRIS [Concomitant]
  3. ADCIRCA [Concomitant]
  4. SILDENAFIL [Concomitant]

REACTIONS (3)
  - Death [Fatal]
  - Renal failure [Unknown]
  - Colitis [Unknown]
